FAERS Safety Report 20978707 (Version 2)
Quarter: 2022Q3

REPORT INFORMATION
  Report Type: Spontaneous
  Country: ES (occurrence: ES)
  Receive Date: 20220618
  Receipt Date: 20220804
  Transmission Date: 20221027
  Serious: Yes (Other)
  Sender: FDA-Public Use
  Company Number: ES-TEVA-2022-ES-2046923

PATIENT
  Age: 80 Year
  Sex: Male

DRUGS (1)
  1. SOLIFENACIN [Suspect]
     Active Substance: SOLIFENACIN
     Indication: Urinary incontinence
     Route: 065

REACTIONS (3)
  - Myasthenia gravis [Unknown]
  - Hyporeflexia [Unknown]
  - Intermittent claudication [Not Recovered/Not Resolved]
